FAERS Safety Report 10343666 (Version 2)
Quarter: 2014Q3

REPORT INFORMATION
  Report Type: Spontaneous
  Country: CH (occurrence: CH)
  Receive Date: 20140725
  Receipt Date: 20140808
  Transmission Date: 20150326
  Serious: Yes (Life-Threatening)
  Sender: FDA-Public Use
  Company Number: CH-ASTRAZENECA-2014SE53529

PATIENT
  Age: 39 Year
  Sex: Female
  Weight: 70 kg

DRUGS (21)
  1. FUNGIZONE [Suspect]
     Active Substance: AMPHOTERICIN B
     Indication: PSEUDOMONAS INFECTION
     Route: 055
     Dates: start: 20140701, end: 20140702
  2. MIDAZOLAM [Suspect]
     Active Substance: MIDAZOLAM\MIDAZOLAM HYDROCHLORIDE
     Route: 041
  3. PREDNISONE. [Suspect]
     Active Substance: PREDNISONE
     Indication: IMMUNOSUPPRESSION
     Route: 048
  4. FUNGIZONE [Suspect]
     Active Substance: AMPHOTERICIN B
     Indication: PSEUDOMONAS INFECTION
     Route: 041
     Dates: start: 20140702, end: 20140702
  5. AZACTAM [Suspect]
     Active Substance: AZTREONAM
     Route: 041
     Dates: start: 20140701
  6. FUROSEMID [Suspect]
     Active Substance: FUROSEMIDE
     Route: 041
  7. HEPARIN [Suspect]
     Active Substance: HEPARIN SODIUM
     Route: 041
  8. BACTIRIM [Suspect]
     Active Substance: SULFAMETHOXAZOLE\TRIMETHOPRIM
     Route: 048
  9. VORICONAZOLE. [Suspect]
     Active Substance: VORICONAZOLE
     Indication: PNEUMONIA
     Route: 048
     Dates: start: 201308, end: 20140612
  10. TACROLIMUS. [Suspect]
     Active Substance: TACROLIMUS
     Indication: IMMUNOSUPPRESSION
     Route: 048
  11. SINTENYL [Suspect]
     Active Substance: FENTANYL CITRATE
     Indication: PNEUMONIA
     Route: 040
  12. MYCOPHENOLATE [Concomitant]
     Active Substance: MYCOPHENOLIC ACID
     Dates: start: 20140630
  13. ESOMEP [Suspect]
     Active Substance: ESOMEPRAZOLE
     Route: 040
  14. DISOPRIVAN [Suspect]
     Active Substance: PROPOFOL
     Route: 041
  15. TAZOBAC [Suspect]
     Active Substance: PIPERACILLIN SODIUM\TAZOBACTAM SODIUM
     Indication: PNEUMONIA
     Route: 041
  16. MORPHIN (NON AZ PRODUCT) [Suspect]
     Active Substance: MORPHINE
     Route: 041
  17. TAVEGYL [Suspect]
     Active Substance: CLEMASTINE FUMARATE
     Route: 040
     Dates: start: 20140701
  18. COLIMICIN [Suspect]
     Active Substance: COLISTIN SULFATE
     Dosage: 2 MILLIONIU, 3 PER 1 DAY
     Route: 041
  19. VORICONAZOLE. [Suspect]
     Active Substance: VORICONAZOLE
     Indication: PNEUMONIA
     Route: 048
  20. ACTRAPID [Suspect]
     Active Substance: INSULIN HUMAN
     Dosage: AS NECESSARY
     Route: 041
  21. TOBI [Suspect]
     Active Substance: TOBRAMYCIN
     Indication: PSEUDOMONAS INFECTION
     Route: 055
     Dates: start: 20140701

REACTIONS (9)
  - Ventricular tachycardia [Recovered/Resolved]
  - Haemolytic anaemia [Not Recovered/Not Resolved]
  - Accidental overdose [Not Recovered/Not Resolved]
  - Liver injury [Not Recovered/Not Resolved]
  - Hyperkalaemia [Recovered/Resolved]
  - Thrombocytopenia [Not Recovered/Not Resolved]
  - Drug administration error [Not Recovered/Not Resolved]
  - Cardiac arrest [Recovered/Resolved]
  - Renal failure acute [Not Recovered/Not Resolved]

NARRATIVE: CASE EVENT DATE: 20140702
